FAERS Safety Report 21334712 (Version 1)
Quarter: 2022Q3

REPORT INFORMATION
  Report Type: Spontaneous
  Country: US (occurrence: US)
  Receive Date: 20220914
  Receipt Date: 20220914
  Transmission Date: 20221027
  Serious: Yes (Other)
  Sender: FDA-Public Use
  Company Number: US-FOUNDATIONCONSUMERHC-2022-US-021949

PATIENT
  Age: 68 Year
  Sex: Female
  Weight: 68.04 kg

DRUGS (1)
  1. ANBESOL MAXIMUM STRENGTH LIQUID [Suspect]
     Active Substance: BENZOCAINE
     Indication: Analgesic therapy
     Dosage: APPLIED TO AFFECTED AREA 1 TIME ONLY
     Route: 061
     Dates: start: 20220908, end: 20220908

REACTIONS (3)
  - Palpitations [Unknown]
  - Dyspnoea [Unknown]
  - Ludwig angina [Not Recovered/Not Resolved]

NARRATIVE: CASE EVENT DATE: 20220909
